FAERS Safety Report 15689922 (Version 1)
Quarter: 2018Q4

REPORT INFORMATION
  Report Type: Other
  Country: US (occurrence: US)
  Receive Date: 20181205
  Receipt Date: 20181205
  Transmission Date: 20190205
  Serious: Yes (Other)
  Sender: FDA-Public Use
  Company Number: US-ORPHAN EUROPE-2059677

PATIENT
  Age: 8 Month
  Sex: Male

DRUGS (4)
  1. HYDROXOCOBALAMIN [Concomitant]
     Active Substance: HYDROXOCOBALAMIN
     Route: 030
  2. LEUCOVORIN. [Concomitant]
     Active Substance: LEUCOVORIN
  3. PYRIDOXINE [Concomitant]
     Active Substance: PYRIDOXINE
  4. CYSTADANE [Suspect]
     Active Substance: BETAINE

REACTIONS (2)
  - Overdose [Unknown]
  - Drug ineffective [Unknown]
